FAERS Safety Report 4411182-X (Version None)
Quarter: 2004Q2

REPORT INFORMATION
  Report Type: 
  Country: None (occurrence: None)
  Receive Date: 20040630
  Receipt Date: 20040513
  Transmission Date: 20050107
  Serious: No
  Sender: FDA-Public Use
  Company Number: 04P-163-0260768-00

PATIENT
  Age: 47 Year
  Sex: Female
  Weight: 54.4316 kg

DRUGS (6)
  1. HUMIRA [Suspect]
     Indication: SPONDYLOARTHROPATHY
     Dosage: 40 MG 1 IN 2 WK SUBCUTANEOUS
     Route: 058
     Dates: start: 20030601, end: 20030901
  2. ISOPHANE INSULIN [Concomitant]
  3. INSULIN HUMAN [Concomitant]
  4. FUROSEMIDE [Concomitant]
  5. MULTIVITAMIN [Concomitant]
  6. EPO [Concomitant]

REACTIONS (6)
  - ERYTHEMA [None]
  - FEELING ABNORMAL [None]
  - MUSCULAR WEAKNESS [None]
  - PALLOR [None]
  - PARAESTHESIA [None]
  - SENSITIVITY OF TEETH [None]
